FAERS Safety Report 22014281 (Version 1)
Quarter: 2023Q1

REPORT INFORMATION
  Report Type: Spontaneous
  Country: US (occurrence: US)
  Receive Date: 20230221
  Receipt Date: 20230221
  Transmission Date: 20230418
  Serious: Yes (Disabling)
  Sender: FDA-Public Use
  Company Number: US-SA-SAC20230220000116

PATIENT
  Sex: Female
  Weight: 75.74 kg

DRUGS (39)
  1. KEVZARA [Suspect]
     Active Substance: SARILUMAB
     Indication: Rheumatoid arthritis
     Dosage: 200 MG, QOW
     Route: 058
  2. GLYBURIDE [Concomitant]
     Active Substance: GLYBURIDE
     Dosage: UNK
  3. TRULICITY [Concomitant]
     Active Substance: DULAGLUTIDE
     Dosage: UNK
  4. KETOROLAC TROMETHAMINE [Concomitant]
     Active Substance: KETOROLAC TROMETHAMINE
  5. ONDANSETRON [Concomitant]
     Active Substance: ONDANSETRON
  6. DIPHENHYDRAMINE [Concomitant]
     Active Substance: DIPHENHYDRAMINE
  7. BIOTIN [Concomitant]
     Active Substance: BIOTIN
  8. VITAMIN D3 [Concomitant]
     Active Substance: CHOLECALCIFEROL
  9. IRON [Concomitant]
     Active Substance: IRON
  10. ZINC [Concomitant]
     Active Substance: ZINC
  11. UBIQUINOL [Concomitant]
     Active Substance: UBIQUINOL
  12. RIBOFLAVIN [Concomitant]
     Active Substance: RIBOFLAVIN
  13. MUCINEX [Concomitant]
     Active Substance: GUAIFENESIN
  14. ATORVASTATIN CALCIUM [Concomitant]
     Active Substance: ATORVASTATIN CALCIUM
  15. LISINOPRIL [Concomitant]
     Active Substance: LISINOPRIL
  16. ZIPRASIDONE [Concomitant]
     Active Substance: ZIPRASIDONE
  17. LOVAZA [Concomitant]
     Active Substance: OMEGA-3-ACID ETHYL ESTERS
  18. IBUPROFEN [Concomitant]
     Active Substance: IBUPROFEN
  19. TYLENOL [Concomitant]
     Active Substance: ACETAMINOPHEN
  20. FAMOTIDINE [Concomitant]
     Active Substance: FAMOTIDINE
  21. ASPIRIN DL-LYSINE [Concomitant]
     Active Substance: ASPIRIN DL-LYSINE
  22. XYZAL [Concomitant]
     Active Substance: LEVOCETIRIZINE DIHYDROCHLORIDE
  23. HERBALS\TURMERIC [Concomitant]
     Active Substance: HERBALS\TURMERIC
  24. CRANBERRY [Concomitant]
     Active Substance: CRANBERRY
  25. CINNAMON [CINNAMOMUM VERUM] [Concomitant]
  26. METOCLOPRAMIDE HYDROCHLORIDE [Concomitant]
     Active Substance: METOCLOPRAMIDE HYDROCHLORIDE
  27. GABAPENTIN [Concomitant]
     Active Substance: GABAPENTIN
  28. DIETARY SUPPLEMENT\RESVERATROL [Concomitant]
     Active Substance: DIETARY SUPPLEMENT\RESVERATROL
  29. LAMOTRIGINE [Concomitant]
     Active Substance: LAMOTRIGINE
  30. VERAPAMIL [Concomitant]
     Active Substance: VERAPAMIL HYDROCHLORIDE
  31. ZIPRASIDONE [Concomitant]
     Active Substance: ZIPRASIDONE
  32. SYNTHROID [Concomitant]
     Active Substance: LEVOTHYROXINE SODIUM
  33. ZYRTEC [Concomitant]
     Active Substance: CETIRIZINE HYDROCHLORIDE
  34. SINGULAIR [Concomitant]
     Active Substance: MONTELUKAST SODIUM
  35. OMEPRAZOLE [Concomitant]
     Active Substance: OMEPRAZOLE
  36. REGLAN [Concomitant]
     Active Substance: METOCLOPRAMIDE HYDROCHLORIDE
  37. DOCUSATE SODIUM [Concomitant]
     Active Substance: DOCUSATE SODIUM
  38. MAGNESIUM [Concomitant]
     Active Substance: MAGNESIUM
  39. PROMETHAZINE HYDROCHLORIDE [Concomitant]
     Active Substance: PROMETHAZINE HYDROCHLORIDE

REACTIONS (6)
  - Loss of personal independence in daily activities [Unknown]
  - Pain [Unknown]
  - Musculoskeletal stiffness [Unknown]
  - Nausea [Unknown]
  - Trigeminal nerve disorder [Unknown]
  - Constipation [Unknown]
